FAERS Safety Report 17090951 (Version 1)
Quarter: 2019Q4

REPORT INFORMATION
  Report Type: Spontaneous
  Country: US (occurrence: US)
  Receive Date: 20191128
  Receipt Date: 20191128
  Transmission Date: 20200122
  Serious: Yes (Disabling)
  Sender: FDA-Public Use
  Company Number: None

PATIENT
  Age: 42 Year
  Sex: Female
  Weight: 58.5 kg

DRUGS (4)
  1. OXYMORPHONE [Suspect]
     Active Substance: OXYMORPHONE
     Indication: SPINAL STENOSIS
     Dosage: ?          QUANTITY:100 CAPSULE(S);?
     Route: 048
     Dates: start: 20191119, end: 20191126
  2. OXYMORPHONE [Suspect]
     Active Substance: OXYMORPHONE
     Indication: INTERVERTEBRAL DISC DEGENERATION
     Dosage: ?          QUANTITY:100 CAPSULE(S);?
     Route: 048
     Dates: start: 20191119, end: 20191126
  3. OXYMORHONE ER 20 MG [Concomitant]
  4. B6  B12  FISH OIL [Concomitant]

REACTIONS (5)
  - Product complaint [None]
  - Spinal operation [None]
  - Product substitution issue [None]
  - Intervertebral disc operation [None]
  - Drug withdrawal syndrome [None]

NARRATIVE: CASE EVENT DATE: 20191122
